FAERS Safety Report 24268595 (Version 1)
Quarter: 2024Q3

REPORT INFORMATION
  Report Type: Spontaneous
  Country: US (occurrence: US)
  Receive Date: 20240830
  Receipt Date: 20240830
  Transmission Date: 20241016
  Serious: No
  Sender: MAYNE
  Company Number: US-MAYNE PHARMA-2023MYN000578

PATIENT

DRUGS (1)
  1. ANNOVERA [Suspect]
     Active Substance: ETHINYL ESTRADIOL\SEGESTERONE ACETATE
     Indication: Contraception
     Dosage: UNK (AS DIRECTED)
     Route: 067
     Dates: start: 20230830

REACTIONS (6)
  - Intermenstrual bleeding [Unknown]
  - Breast tenderness [Unknown]
  - Abdominal pain [Unknown]
  - Rash [Unknown]
  - Emotional disorder [Unknown]
  - Crying [Unknown]
